FAERS Safety Report 6908523-8 (Version None)
Quarter: 2010Q3

REPORT INFORMATION
  Report Type: 
  Country: None (occurrence: None)
  Receive Date: 20100805
  Receipt Date: 20100723
  Transmission Date: 20110219
  Serious: Yes (Other)
  Sender: FDA-Public Use
  Company Number: JP-ELI_LILLY_AND_COMPANY-JP201007006601

PATIENT
  Age: 48 Year
  Sex: Female

DRUGS (4)
  1. CYMBALTA [Suspect]
     Indication: GLOSSODYNIA
     Dosage: 20 MG, DAILY (1/D)
     Route: 048
     Dates: start: 20100521, end: 20100702
  2. MEILAX [Concomitant]
     Indication: GLOSSODYNIA
     Dosage: 0.5 MG, DAILY (1/D)
     Route: 048
     Dates: start: 20091210, end: 20100702
  3. DOGMATYL [Concomitant]
     Indication: GLOSSODYNIA
     Dosage: 150 MG, DAILY (1/D)
     Route: 048
     Dates: start: 20090226, end: 20090318
  4. DOGMATYL [Concomitant]
     Dosage: 50 MG, DAILY (1/D)
     Route: 048
     Dates: start: 20090319, end: 20100702

REACTIONS (2)
  - INTERSTITIAL LUNG DISEASE [None]
  - OFF LABEL USE [None]
